FAERS Safety Report 8009091-2 (Version None)
Quarter: 2011Q4

REPORT INFORMATION
  Report Type: 
  Country: None (occurrence: None)
  Receive Date: 20111227
  Receipt Date: 20111219
  Transmission Date: 20120403
  Serious: No
  Sender: FDA-Public Use
  Company Number: US-PFIZER INC-2011308860

PATIENT
  Sex: Female

DRUGS (1)
  1. PREMPRO [Suspect]
     Dosage: (0.625 MG/2.5 MG TABLETS)

REACTIONS (4)
  - DEPRESSION [None]
  - WEIGHT INCREASED [None]
  - INSOMNIA [None]
  - DRUG DISPENSING ERROR [None]
